FAERS Safety Report 7935730-8 (Version None)
Quarter: 2011Q4

REPORT INFORMATION
  Report Type: 
  Country: None (occurrence: None)
  Receive Date: 20111121
  Receipt Date: 20111107
  Transmission Date: 20120403
  Serious: Yes (Hospitalization)
  Sender: FDA-Public Use
  Company Number: 2011AP001961

PATIENT
  Age: 9 Year
  Sex: Male

DRUGS (2)
  1. DEPAKOTE [Suspect]
     Indication: COMPLEX PARTIAL SEIZURES
  2. LAMOTRIGINE [Suspect]
     Indication: COMPLEX PARTIAL SEIZURES

REACTIONS (3)
  - STEVENS-JOHNSON SYNDROME [None]
  - TOXIC EPIDERMAL NECROLYSIS [None]
  - STAPHYLOCOCCAL SKIN INFECTION [None]
